FAERS Safety Report 17582541 (Version 1)
Quarter: 2020Q1

REPORT INFORMATION
  Report Type: Spontaneous
  Country: US (occurrence: US)
  Receive Date: 20200325
  Receipt Date: 20200325
  Transmission Date: 20200409
  Serious: No
  Sender: FDA-Public Use
  Company Number: US-009507513-2003USA004906

PATIENT
  Sex: Female

DRUGS (2)
  1. NATEGLINIDE. [Suspect]
     Active Substance: NATEGLINIDE
     Indication: DIABETES MELLITUS
  2. JANUVIA [Suspect]
     Active Substance: SITAGLIPTIN PHOSPHATE
     Dosage: 100 MILLIGRAM  ONCE A DAY
     Route: 048

REACTIONS (5)
  - Drug ineffective [Unknown]
  - Malaise [Unknown]
  - Blood glucose decreased [Unknown]
  - Product dose omission [Unknown]
  - Dizziness [Unknown]

NARRATIVE: CASE EVENT DATE: 2020
